FAERS Safety Report 16172941 (Version 1)
Quarter: 2019Q2

REPORT INFORMATION
  Report Type: Spontaneous
  Country: US (occurrence: US)
  Receive Date: 20190409
  Receipt Date: 20190409
  Transmission Date: 20190711
  Serious: No
  Sender: FDA-Public Use
  Company Number: US-PFIZER INC-2019140931

PATIENT
  Age: 64 Year
  Sex: Female

DRUGS (2)
  1. MORPHINE SULFATE. [Suspect]
     Active Substance: MORPHINE SULFATE
     Indication: PAIN
     Dosage: UNK
  2. IBRANCE [Suspect]
     Active Substance: PALBOCICLIB
     Dosage: UNK

REACTIONS (8)
  - Alopecia [Unknown]
  - Emotional disorder [Unknown]
  - Gait disturbance [Unknown]
  - Bone pain [Unknown]
  - Nausea [Unknown]
  - Insomnia [Unknown]
  - Constipation [Unknown]
  - Dehydration [Unknown]
